FAERS Safety Report 14978611 (Version 1)
Quarter: 2018Q2

REPORT INFORMATION
  Report Type: Spontaneous
  Country: US (occurrence: US)
  Receive Date: 20180516
  Receipt Date: 20180516
  Transmission Date: 20180711
  Serious: No
  Sender: FDA-Public Use
  Company Number: None

PATIENT
  Age: 46 Year
  Sex: Female
  Weight: 63 kg

DRUGS (2)
  1. BUPROPION. [Suspect]
     Active Substance: BUPROPION
     Indication: ANXIETY
     Route: 048
     Dates: start: 20170403, end: 20170520
  2. BUPROPION. [Suspect]
     Active Substance: BUPROPION
     Indication: DEPRESSION
     Route: 048
     Dates: start: 20170403, end: 20170520

REACTIONS (7)
  - Headache [None]
  - Insurance issue [None]
  - Product substitution issue [None]
  - Drug ineffective [None]
  - Depression [None]
  - Anxiety [None]
  - Crying [None]

NARRATIVE: CASE EVENT DATE: 20170403
